FAERS Safety Report 15111638 (Version 2)
Quarter: 2018Q3

REPORT INFORMATION
  Report Type: Spontaneous
  Country: ES (occurrence: ES)
  Receive Date: 20180705
  Receipt Date: 20180713
  Transmission Date: 20181010
  Serious: Yes (Disabling, Other)
  Sender: FDA-Public Use
  Company Number: ES-PFIZER INC-2018272316

PATIENT
  Age: 65 Year
  Sex: Male

DRUGS (4)
  1. AMIODARONE HCL [Suspect]
     Active Substance: AMIODARONE HYDROCHLORIDE
     Dosage: 300 MG, UNK
     Route: 048
  2. BISOPROLOL [Concomitant]
     Active Substance: BISOPROLOL
     Indication: SINUS ARRHYTHMIA
     Dosage: UNK
  3. SIMVASTATIN. [Interacting]
     Active Substance: SIMVASTATIN
     Dosage: 20 MG, 1X/DAY
     Route: 048
     Dates: start: 2016
  4. OMEPRAZOL 1 A PHARMA [Concomitant]
     Active Substance: OMEPRAZOLE
     Indication: HYPERCHOLESTEROLAEMIA
     Dosage: UNK

REACTIONS (2)
  - Drug interaction [Recovered/Resolved]
  - Myalgia [Recovered/Resolved]

NARRATIVE: CASE EVENT DATE: 2017
